FAERS Safety Report 4441384-8 (Version None)
Quarter: 2004Q3

REPORT INFORMATION
  Report Type: 
  Country: None (occurrence: None)
  Receive Date: 20040728
  Receipt Date: 20040219
  Transmission Date: 20050211
  Serious: No
  Sender: FDA-Public Use
  Company Number: USA040259817

PATIENT
  Age: 55 Year
  Sex: Male

DRUGS (1)
  1. STRATTERA [Suspect]
     Dosage: 40 MG DAY

REACTIONS (2)
  - MUSCLE SPASMS [None]
  - MYALGIA [None]
